FAERS Safety Report 5206799-9 (Version None)
Quarter: 2006Q4

REPORT INFORMATION
  Report Type: 
  Country: None (occurrence: None)
  Receive Date: 20061026
  Receipt Date: 20060908
  Transmission Date: 20070319
  Serious: No
  Sender: FDA-Public Use
  Company Number: 2006110104

PATIENT
  Age: 44 Year
  Sex: Female
  Weight: 68.0396 kg

DRUGS (4)
  1. LYRICA [Suspect]
     Indication: PAIN IN EXTREMITY
     Dosage: 75 MG (75 MG, 1 IN 1 D)
     Dates: start: 20050101
  2. LEVAQUIN [Suspect]
     Indication: STAPHYLOCOCCAL INFECTION
     Dates: start: 20060401
  3. NEXIUM [Concomitant]
  4. AMBIEN [Concomitant]

REACTIONS (2)
  - MALAISE [None]
  - PAIN [None]
